FAERS Safety Report 4851967-9 (Version None)
Quarter: 2005Q4

REPORT INFORMATION
  Report Type: 
  Country: None (occurrence: None)
  Receive Date: 20051212
  Receipt Date: 20051212
  Transmission Date: 20060501
  Serious: Yes (Other)
  Sender: FDA-Public Use
  Company Number: None

PATIENT
  Sex: Male
  Weight: 103.18 kg

DRUGS (7)
  1. ZOSYN [Suspect]
     Indication: OSTEOMYELITIS
     Dosage: 4.5 G IV OVER 30 MIN Q 8 H
     Route: 042
     Dates: start: 20051117, end: 20051206
  2. ZOSYN [Suspect]
     Indication: PSEUDOMONAS INFECTION
     Dosage: 4.5 G IV OVER 30 MIN Q 8 H
     Route: 042
     Dates: start: 20051117, end: 20051206
  3. CIPRO [Suspect]
     Dosage: 750 MG PO BID
     Route: 048
     Dates: start: 20051123, end: 20051206
  4. AMBIEN [Concomitant]
  5. PAXIL [Concomitant]
  6. ACIPHEX [Concomitant]
  7. HEPARIN [Concomitant]

REACTIONS (2)
  - NEUTROPHIL PERCENTAGE DECREASED [None]
  - WHITE BLOOD CELL COUNT DECREASED [None]
